FAERS Safety Report 21118636 (Version 2)
Quarter: 2022Q3

REPORT INFORMATION
  Report Type: Report from Study
  Country: US (occurrence: US)
  Receive Date: 20220722
  Receipt Date: 20220803
  Transmission Date: 20221026
  Serious: Yes (Other)
  Sender: FDA-Public Use
  Company Number: US-BRISTOL-MYERS SQUIBB COMPANY-2022-025639

PATIENT
  Age: 60 Year
  Sex: Female
  Weight: 99.790 kg

DRUGS (17)
  1. REVLIMID [Suspect]
     Active Substance: LENALIDOMIDE
     Indication: Myelodysplastic syndrome
     Route: 048
     Dates: start: 20211220
  2. REVLIMID [Suspect]
     Active Substance: LENALIDOMIDE
     Dosage: DAILY IN MORNING
     Route: 048
     Dates: start: 20211220
  3. MOBIC [Concomitant]
     Active Substance: MELOXICAM
     Indication: Myelodysplastic syndrome
     Route: 065
  4. CELEBREX [Concomitant]
     Active Substance: CELECOXIB
     Indication: Myelodysplastic syndrome
     Route: 065
  5. VENLAFAXINE [Concomitant]
     Active Substance: VENLAFAXINE HYDROCHLORIDE
     Indication: Myelodysplastic syndrome
     Route: 065
  6. ASPIRIN [Concomitant]
     Active Substance: ASPIRIN
     Indication: Myelodysplastic syndrome
     Route: 065
  7. MAXZIDE [Concomitant]
     Active Substance: HYDROCHLOROTHIAZIDE\TRIAMTERENE
     Indication: Myelodysplastic syndrome
     Route: 065
  8. VITAMIN C [Concomitant]
     Active Substance: ASCORBIC ACID
     Indication: Myelodysplastic syndrome
     Route: 065
  9. VITAMIN D3 [Concomitant]
     Active Substance: CHOLECALCIFEROL
     Indication: Myelodysplastic syndrome
     Route: 065
  10. DOCUSATE SODIUM [Concomitant]
     Active Substance: DOCUSATE SODIUM
     Indication: Myelodysplastic syndrome
     Route: 065
  11. MAGNESIUM [Concomitant]
     Active Substance: MAGNESIUM
     Indication: Myelodysplastic syndrome
     Route: 065
  12. POTASSIUM CHLORIDE [Concomitant]
     Active Substance: POTASSIUM CHLORIDE
     Indication: Myelodysplastic syndrome
     Route: 065
  13. FUROSEMIDE [Concomitant]
     Active Substance: FUROSEMIDE
     Indication: Myelodysplastic syndrome
     Route: 065
  14. FOLIC ACID [Concomitant]
     Active Substance: FOLIC ACID
     Indication: Myelodysplastic syndrome
     Route: 065
  15. CYCLOBENZAPRINE [Concomitant]
     Active Substance: CYCLOBENZAPRINE
     Indication: Myelodysplastic syndrome
     Route: 065
  16. FENTANYL [Concomitant]
     Active Substance: FENTANYL
     Indication: Myelodysplastic syndrome
     Route: 065
  17. IRON [Concomitant]
     Active Substance: IRON
     Indication: Myelodysplastic syndrome
     Route: 065

REACTIONS (10)
  - Sciatica [Unknown]
  - Hyperhidrosis [Unknown]
  - Muscle spasms [Unknown]
  - Lethargy [Unknown]
  - Pain in extremity [Unknown]
  - Back pain [Unknown]
  - Spondylolysis [Recovering/Resolving]
  - Blood potassium decreased [Recovered/Resolved]
  - Blood sodium decreased [Recovered/Resolved]
  - Blood chloride decreased [Recovered/Resolved]

NARRATIVE: CASE EVENT DATE: 20220701
